FAERS Safety Report 12988657 (Version 1)
Quarter: 2016Q4

REPORT INFORMATION
  Report Type: Spontaneous
  Country: US (occurrence: US)
  Receive Date: 20161130
  Receipt Date: 20161130
  Transmission Date: 20170207
  Serious: No
  Sender: FDA-Public Use
  Company Number: US-LOREAL USA PRODUCTS, INC.-2016LOR00004

PATIENT
  Sex: Female
  Weight: 79.37 kg

DRUGS (3)
  1. CETAPHIL CLEANSER [Concomitant]
  2. SEBUM MOISTURIZER [Concomitant]
  3. LA ROCHE POSAY LAB. DERMATOLOGIQUE ANTHELIOS SX DAILY MOISTURIZING SUNSCREEN SPF 15 [Suspect]
     Active Substance: AVOBENZONE\ECAMSULE\OCTOCRYLENE
     Dosage: UNK UNK, 1X/DAY
     Route: 061
     Dates: start: 2009, end: 201602

REACTIONS (2)
  - Application site exfoliation [Recovering/Resolving]
  - Application site inflammation [Recovering/Resolving]
